FAERS Safety Report 20177655 (Version 1)
Quarter: 2021Q4

REPORT INFORMATION
  Report Type: Spontaneous
  Country: US (occurrence: US)
  Receive Date: 20211213
  Receipt Date: 20211213
  Transmission Date: 20220303
  Serious: No
  Sender: FDA-Public Use
  Company Number: US-SA-SAC20211206000629

PATIENT
  Age: 58 Year
  Sex: Female

DRUGS (8)
  1. DUPIXENT [Suspect]
     Active Substance: DUPILUMAB
     Indication: Asthma
     Dosage: 300 MG, QOW
     Route: 058
     Dates: start: 20210202
  2. ASPIRIN [Concomitant]
     Active Substance: ASPIRIN
  3. FUROSEMIDE [Concomitant]
     Active Substance: FUROSEMIDE
  4. PREDNISONE [Concomitant]
     Active Substance: PREDNISONE
  5. SINGULAIR [Concomitant]
     Active Substance: MONTELUKAST SODIUM
  6. SIVEXTRO [Concomitant]
     Active Substance: TEDIZOLID PHOSPHATE
  7. TELMISARTAN [Concomitant]
     Active Substance: TELMISARTAN
  8. ESOMEPRAZOLE MAGNESIUM [Concomitant]
     Active Substance: ESOMEPRAZOLE MAGNESIUM

REACTIONS (1)
  - Asthma [Not Recovered/Not Resolved]

NARRATIVE: CASE EVENT DATE: 20211101
